FAERS Safety Report 7520158-5 (Version None)
Quarter: 2011Q2

REPORT INFORMATION
  Report Type: 
  Country: None (occurrence: None)
  Receive Date: 20110602
  Receipt Date: 20110531
  Transmission Date: 20111010
  Serious: Yes (Other)
  Sender: FDA-Public Use
  Company Number: US-UCBSA-027200

PATIENT
  Sex: Female

DRUGS (8)
  1. COLACE [Concomitant]
  2. FOLIC ACID [Concomitant]
  3. CIMZIA [Suspect]
     Route: 058
     Dates: start: 20110527
  4. CIMZIA [Suspect]
     Indication: CROHN'S DISEASE
     Route: 058
     Dates: start: 20100723
  5. PEPCID [Concomitant]
  6. METHOTREXATE [Concomitant]
  7. ROXICODONE [Concomitant]
  8. CELEXA [Concomitant]

REACTIONS (8)
  - ORAL CANDIDIASIS [None]
  - DRY SKIN [None]
  - ASTHENIA [None]
  - RECTAL ABSCESS [None]
  - FAECAL VOLUME INCREASED [None]
  - PRURITUS [None]
  - NAUSEA [None]
  - FATIGUE [None]
